FAERS Safety Report 6676103-8 (Version None)
Quarter: 2010Q2

REPORT INFORMATION
  Report Type: 
  Country: None (occurrence: None)
  Receive Date: 20100412
  Receipt Date: 20100331
  Transmission Date: 20101027
  Serious: Yes (Hospitalization)
  Sender: FDA-Public Use
  Company Number: FR-PFIZER INC-2010040772

PATIENT
  Age: 81 Year
  Sex: Female

DRUGS (5)
  1. ZOLOFT [Suspect]
     Dosage: 50 MG, 1X/DAY
     Route: 048
     Dates: end: 20100121
  2. IMOVANE [Concomitant]
     Dosage: 1 AT NIGHT
  3. VASTAREL [Concomitant]
     Dosage: 35 MG, 2X/DAY
  4. SERESTA [Concomitant]
     Dosage: 10 MG AT NIGHT
  5. DI-ANTALVIC [Concomitant]
     Indication: PAIN
     Dosage: UNK

REACTIONS (2)
  - BALANCE DISORDER [None]
  - TREMOR [None]
